FAERS Safety Report 11408090 (Version 9)
Quarter: 2016Q4

REPORT INFORMATION
  Report Type: Spontaneous
  Country: US (occurrence: US)
  Receive Date: 20150821
  Receipt Date: 20161116
  Transmission Date: 20170206
  Serious: Yes (Hospitalization)
  Sender: FDA-Public Use
  Company Number: US-BAUSCH-BL-2015-019855

PATIENT
  Age: 47 Year
  Sex: Female
  Weight: 81.72 kg

DRUGS (8)
  1. FIRAZYR [Suspect]
     Active Substance: ICATIBANT ACETATE
     Indication: HEREDITARY ANGIOEDEMA
     Dosage: AS DIRECTED
     Route: 058
  2. SODIUM CHLORIDE. [Concomitant]
     Active Substance: SODIUM CHLORIDE
     Indication: PRODUCT USED FOR UNKNOWN INDICATION
  3. STERILE WATER [Concomitant]
     Active Substance: WATER
     Indication: PRODUCT USED FOR UNKNOWN INDICATION
  4. KALBITOR [Concomitant]
     Active Substance: ECALLANTIDE
     Indication: PRODUCT USED FOR UNKNOWN INDICATION
     Route: 058
  5. RUCONEST [Suspect]
     Active Substance: HUMAN C1-ESTERASE INHIBITOR
     Dosage: AS NEEDED
     Route: 042
     Dates: start: 20160706
  6. RUCONEST [Suspect]
     Active Substance: HUMAN C1-ESTERASE INHIBITOR
     Indication: HEREDITARY ANGIOEDEMA
     Dosage: AS DIRECTED
     Route: 042
     Dates: start: 20150623, end: 20150623
  7. FIRAZYR [Suspect]
     Active Substance: ICATIBANT ACETATE
     Dates: start: 20160329
  8. EPIPEN [Concomitant]
     Active Substance: EPINEPHRINE
     Indication: PRODUCT USED FOR UNKNOWN INDICATION

REACTIONS (15)
  - Pigmentation disorder [Unknown]
  - Hypertension [Unknown]
  - Unevaluable event [Unknown]
  - Chest pain [Unknown]
  - Abdominal pain upper [Unknown]
  - Rash macular [Not Recovered/Not Resolved]
  - Vomiting [Unknown]
  - Ear pain [Unknown]
  - Adverse drug reaction [Unknown]
  - Application site haemorrhage [Unknown]
  - Drug effect delayed [Unknown]
  - Dehydration [Unknown]
  - Aphonia [Unknown]
  - Contusion [Unknown]
  - Headache [Unknown]

NARRATIVE: CASE EVENT DATE: 201510
